FAERS Safety Report 23227613 (Version 2)
Quarter: 2023Q4

REPORT INFORMATION
  Report Type: Spontaneous
  Country: JP (occurrence: JP)
  Receive Date: 20231124
  Receipt Date: 20231218
  Transmission Date: 20240110
  Serious: Yes (Other)
  Sender: FDA-Public Use
  Company Number: JP-ASTELLAS-2023JP012318

PATIENT
  Age: 70 Year
  Sex: Male

DRUGS (1)
  1. LINZESS [Suspect]
     Active Substance: LINACLOTIDE
     Indication: Constipation
     Dosage: 0.5 MG, ONCE DAILY, 2 TABLETS ADMINISTERED 2 HOURS BEFORE MEALS
     Route: 048

REACTIONS (2)
  - Parkinson^s disease [Unknown]
  - Product use issue [Unknown]
